FAERS Safety Report 7400460-8 (Version None)
Quarter: 2011Q2

REPORT INFORMATION
  Report Type: 
  Country: None (occurrence: None)
  Receive Date: 20110405
  Receipt Date: 20110405
  Transmission Date: 20111010
  Serious: Yes (Other)
  Sender: FDA-Public Use
  Company Number: None

PATIENT
  Sex: Male
  Weight: 68.0396 kg

DRUGS (2)
  1. GENTEAL EYE DROPS MODERATE TO SEVERE GENTEAL [Suspect]
     Indication: DRY EYE
     Dosage: 1 DROP ONE TIME OPHTHALMIC
     Route: 047
     Dates: start: 20110310, end: 20110310
  2. CVS EYE DROPS MILD TO MODERATE CVS DRUG CHAIN [Suspect]
     Indication: DRY EYE
     Dosage: 1 DROP ONE TIME OPHTHALMIC
     Route: 047
     Dates: start: 20110320, end: 20110320

REACTIONS (2)
  - OCULAR HYPERAEMIA [None]
  - EYE IRRITATION [None]
